FAERS Safety Report 8460587-9 (Version None)
Quarter: 2012Q2

REPORT INFORMATION
  Report Type: 
  Country: None (occurrence: None)
  Receive Date: 20120622
  Receipt Date: 20120425
  Transmission Date: 20120825
  Serious: No
  Sender: FDA-Public Use
  Company Number: US-ASTRAZENECA-2012SE26963

PATIENT
  Sex: Male

DRUGS (3)
  1. BRILINTA [Suspect]
     Route: 048
     Dates: start: 20120101
  2. BRILINTA [Suspect]
     Route: 048
  3. BLODD PRESSURE MEDICATION [Concomitant]

REACTIONS (3)
  - DYSPNOEA [None]
  - DISCOMFORT [None]
  - DIZZINESS [None]
